FAERS Safety Report 19282791 (Version 1)
Quarter: 2021Q2

REPORT INFORMATION
  Report Type: Spontaneous
  Country: US (occurrence: US)
  Receive Date: 20210520
  Receipt Date: 20210520
  Transmission Date: 20210717
  Serious: No
  Sender: FDA-Public Use
  Company Number: US-009507513-2105USA002498

PATIENT
  Age: 63 Year
  Sex: Male

DRUGS (1)
  1. JANUMET XR [Suspect]
     Active Substance: METFORMIN HYDROCHLORIDE\SITAGLIPTIN PHOSPHATE
     Indication: BLOOD GLUCOSE
     Dosage: 1 TABLET, ONCE DAILY
     Route: 048

REACTIONS (6)
  - Therapeutic product effect decreased [Not Recovered/Not Resolved]
  - COVID-19 [Recovered/Resolved]
  - Blood glucose abnormal [Not Recovered/Not Resolved]
  - Road traffic accident [Unknown]
  - Weight decreased [Not Recovered/Not Resolved]
  - Glycosylated haemoglobin abnormal [Not Recovered/Not Resolved]

NARRATIVE: CASE EVENT DATE: 202007
